FAERS Safety Report 5923541-4 (Version None)
Quarter: 2008Q4

REPORT INFORMATION
  Report Type: 
  Country: None (occurrence: None)
  Receive Date: 20081015
  Receipt Date: 20081008
  Transmission Date: 20090506
  Serious: Yes (Hospitalization)
  Sender: FDA-Public Use
  Company Number: T08-USA-01017-01

PATIENT
  Age: 82 Year
  Sex: Male
  Weight: 72.7 kg

DRUGS (5)
  1. MEMANTINE HCL [Suspect]
     Indication: DEMENTIA ALZHEIMER'S TYPE
     Dosage: 28 MG (28 MG, 1 IN 1 D), ORAL
     Route: 048
     Dates: start: 20080218
  2. ARICEPT [Concomitant]
  3. DIAZEPAM [Concomitant]
  4. MULTI-VITAMINS [Concomitant]
  5. METAMUCIL [Concomitant]

REACTIONS (12)
  - ASTHENIA [None]
  - BLOOD PRESSURE SYSTOLIC INCREASED [None]
  - BODY TEMPERATURE DECREASED [None]
  - BRADYCARDIA [None]
  - CONVULSION [None]
  - HYPERHIDROSIS [None]
  - LETHARGY [None]
  - LOSS OF CONSCIOUSNESS [None]
  - MENTAL STATUS CHANGES [None]
  - PRESYNCOPE [None]
  - SOMNOLENCE [None]
  - TREMOR [None]
